FAERS Safety Report 14571667 (Version 1)
Quarter: 2018Q1

REPORT INFORMATION
  Report Type: Spontaneous
  Country: US (occurrence: US)
  Receive Date: 20180226
  Receipt Date: 20180226
  Transmission Date: 20180509
  Serious: No
  Sender: FDA-Public Use
  Company Number: US-PFIZER INC-2018077592

PATIENT
  Age: 3 Year
  Sex: Male

DRUGS (1)
  1. CORTEF [Suspect]
     Active Substance: HYDROCORTISONE
     Dosage: 2.5 - 1.25 - 2.5 MG ALTERNATE DAY

REACTIONS (2)
  - Aggression [Unknown]
  - Drug dose omission [Unknown]
